FAERS Safety Report 14881907 (Version 1)
Quarter: 2018Q2

REPORT INFORMATION
  Report Type: Spontaneous
  Country: US (occurrence: US)
  Receive Date: 20180425
  Receipt Date: 20180425
  Transmission Date: 20180711
  Serious: Yes (Hospitalization)
  Sender: FDA-Public Use
  Company Number: None

PATIENT
  Age: 73 Year
  Sex: Female
  Weight: 68 kg

DRUGS (3)
  1. LEUCOVORIN CALCIUM. [Suspect]
     Active Substance: LEUCOVORIN CALCIUM
     Dates: end: 20180219
  2. 5-FLUOROURCIL (5-FU) [Suspect]
     Active Substance: FLUOROURACIL
     Dates: end: 20180219
  3. ELOXATIN [Suspect]
     Active Substance: OXALIPLATIN
     Dates: end: 20180219

REACTIONS (5)
  - Vomiting [None]
  - Abdominal distension [None]
  - Large intestinal obstruction [None]
  - Abdominal pain [None]
  - Pneumatosis [None]

NARRATIVE: CASE EVENT DATE: 20180412
